FAERS Safety Report 17276149 (Version 1)
Quarter: 2020Q1

REPORT INFORMATION
  Report Type: Spontaneous
  Country: BE (occurrence: BE)
  Receive Date: 20200116
  Receipt Date: 20200116
  Transmission Date: 20200409
  Serious: Yes (Hospitalization, Other)
  Sender: FDA-Public Use
  Company Number: BE-GLAXOSMITHKLINE-BE2020004569

PATIENT
  Age: 30 Year
  Sex: Male

DRUGS (2)
  1. MALARONE [Suspect]
     Active Substance: ATOVAQUONE\PROGUANIL HYDROCHLORIDE
     Indication: MALARIA PROPHYLAXIS
     Dosage: UNK
     Route: 048
  2. LARIAM [Suspect]
     Active Substance: MEFLOQUINE HYDROCHLORIDE
     Indication: MALARIA PROPHYLAXIS
     Dosage: UNK
     Route: 048
     Dates: start: 201506

REACTIONS (7)
  - Mental disorder [Unknown]
  - Hallucination [Unknown]
  - Suicidal ideation [Recovered/Resolved]
  - Depression [Unknown]
  - Paranoia [Unknown]
  - Fatigue [Unknown]
  - Anxiety [Not Recovered/Not Resolved]

NARRATIVE: CASE EVENT DATE: 201506
